FAERS Safety Report 13267049 (Version 1)
Quarter: 2017Q1

REPORT INFORMATION
  Report Type: Spontaneous
  Country: US (occurrence: US)
  Receive Date: 20170223
  Receipt Date: 20170223
  Transmission Date: 20170428
  Serious: Yes (Other)
  Sender: FDA-Public Use
  Company Number: None

PATIENT
  Age: 23 Year
  Sex: Female
  Weight: 108 kg

DRUGS (1)
  1. BELVIQ XR [Suspect]
     Active Substance: LORCASERIN HYDROCHLORIDE
     Indication: WEIGHT DECREASED
     Dosage: ?          QUANTITY:1 TABLET(S);?
     Route: 048
     Dates: start: 20150503, end: 20151031

REACTIONS (6)
  - Heart rate irregular [None]
  - Muscle twitching [None]
  - Tachyphrenia [None]
  - Restlessness [None]
  - Hypotension [None]
  - Euphoric mood [None]

NARRATIVE: CASE EVENT DATE: 20170203
